FAERS Safety Report 12664267 (Version 4)
Quarter: 2016Q4

REPORT INFORMATION
  Report Type: Spontaneous
  Country: US (occurrence: US)
  Receive Date: 20160818
  Receipt Date: 20161026
  Transmission Date: 20170207
  Serious: No
  Sender: FDA-Public Use
  Company Number: US-ACTELION-A-US2016-140930

PATIENT
  Age: 63 Year
  Sex: Female

DRUGS (3)
  1. OPSUMIT [Suspect]
     Active Substance: MACITENTAN
     Indication: PULMONARY ARTERIAL HYPERTENSION
     Dosage: 10 MG, QD
     Route: 048
     Dates: start: 20160811
  2. VORICONAZOLE. [Suspect]
     Active Substance: VORICONAZOLE
     Indication: LOWER RESPIRATORY TRACT INFECTION FUNGAL
     Dosage: UNK, BID FOR 6 MONTHS
     Route: 065
  3. ADCIRCA [Concomitant]
     Active Substance: TADALAFIL

REACTIONS (9)
  - Tinnitus [Unknown]
  - Lower respiratory tract infection fungal [Unknown]
  - Dizziness [Unknown]
  - Nasal dryness [Unknown]
  - Condition aggravated [Unknown]
  - Headache [Unknown]
  - Malaise [Unknown]
  - Anaemia [Unknown]
  - Abdominal discomfort [Unknown]
